FAERS Safety Report 4975190-2 (Version None)
Quarter: 2006Q2

REPORT INFORMATION
  Report Type: 
  Country: None (occurrence: None)
  Receive Date: 20060417
  Receipt Date: 20060417
  Transmission Date: 20061013
  Serious: Yes (Other)
  Sender: FDA-Public Use
  Company Number: None

PATIENT
  Sex: Male
  Weight: 56.246 kg

DRUGS (1)
  1. KETEK [Suspect]
     Indication: SINUSITIS
     Dosage: 800 MG DAILY PO
     Route: 048
     Dates: start: 20050903, end: 20050905

REACTIONS (2)
  - ANTINUCLEAR ANTIBODY POSITIVE [None]
  - HEPATITIS [None]
